FAERS Safety Report 4538628-0 (Version None)
Quarter: 2004Q4

REPORT INFORMATION
  Report Type: 
  Country: None (occurrence: None)
  Receive Date: 20041223
  Receipt Date: 20041207
  Transmission Date: 20050328
  Serious: Yes (Death)
  Sender: FDA-Public Use
  Company Number: 2004-DE-06113BY(0)

PATIENT
  Age: 71 Year
  Sex: Female

DRUGS (3)
  1. MICARDIS HCT [Suspect]
     Dosage: PO
     Route: 048
     Dates: start: 20040205
  2. ASPIRIN [Concomitant]
  3. IRBESARTAN [Concomitant]

REACTIONS (1)
  - CEREBRAL HAEMORRHAGE [None]
